FAERS Safety Report 7483131-1 (Version None)
Quarter: 2011Q2

REPORT INFORMATION
  Report Type: 
  Country: None (occurrence: None)
  Receive Date: 20110516
  Receipt Date: 20110511
  Transmission Date: 20111010
  Serious: Yes (Other)
  Sender: FDA-Public Use
  Company Number: US-MERCK-1104USA01709

PATIENT
  Age: 31 Year
  Sex: Female

DRUGS (2)
  1. SINGULAIR [Suspect]
     Indication: HYPERSENSITIVITY
     Route: 048
     Dates: start: 20080101
  2. SINGULAIR [Suspect]
     Indication: ASTHMA
     Route: 048
     Dates: start: 20080101

REACTIONS (4)
  - OEDEMA PERIPHERAL [None]
  - LARGE FOR DATES BABY [None]
  - DRUG EXPOSURE DURING PREGNANCY [None]
  - SWELLING [None]
